FAERS Safety Report 22227569 (Version 1)
Quarter: 2023Q2

REPORT INFORMATION
  Report Type: Spontaneous
  Country: US (occurrence: US)
  Receive Date: 20230419
  Receipt Date: 20230419
  Transmission Date: 20230722
  Serious: Yes (Hospitalization, Other)
  Sender: FDA-Public Use
  Company Number: US-GLAXOSMITHKLINE-US2023AMR055947

PATIENT

DRUGS (1)
  1. FLOVENT HFA [Suspect]
     Active Substance: FLUTICASONE PROPIONATE
     Indication: Product used for unknown indication
     Dosage: UNK
     Dates: start: 2007

REACTIONS (7)
  - Atrial fibrillation [Unknown]
  - Graves^ disease [Recovered/Resolved]
  - Endocrine ophthalmopathy [Unknown]
  - Fatigue [Unknown]
  - Weight decreased [Unknown]
  - Diarrhoea [Unknown]
  - Diplopia [Unknown]
